FAERS Safety Report 5363424-4 (Version None)
Quarter: 2007Q2

REPORT INFORMATION
  Report Type: 
  Country: None (occurrence: None)
  Receive Date: 20070618
  Receipt Date: 20070611
  Transmission Date: 20071010
  Serious: Yes (Death)
  Sender: FDA-Public Use
  Company Number: 144-C5013-07051420

PATIENT
  Age: 70 Year
  Sex: Male
  Weight: 60 kg

DRUGS (6)
  1. CC-5013 (LENALIDOMIDE) [Suspect]
     Indication: AMYLOIDOSIS
     Dosage: 25 MG, 1 IN 1 D, ORAL
     Route: 048
     Dates: start: 20070510
  2. ASPIRIN [Concomitant]
  3. HIBOR 3500                       (HEPARIN SODIUM) [Concomitant]
  4. ONDANSETRONE               (ONDANSETRON) [Concomitant]
  5. DEPRELIO         (ETRAFON-D) [Concomitant]
  6. OXACARBAMAZEPINE     (CARBAMAZEPINE) [Concomitant]

REACTIONS (2)
  - SUDDEN DEATH [None]
  - VOMITING [None]
